FAERS Safety Report 23791974 (Version 1)
Quarter: 2024Q2

REPORT INFORMATION
  Report Type: Report from Study
  Country: US (occurrence: US)
  Receive Date: 20240429
  Receipt Date: 20240429
  Transmission Date: 20240716
  Serious: Yes (Hospitalization, Other)
  Sender: FDA-Public Use
  Company Number: US-ABBVIE-5732825

PATIENT
  Age: 33 Year
  Sex: Female

DRUGS (3)
  1. RINVOQ [Suspect]
     Active Substance: UPADACITINIB
     Indication: Crohn^s disease
     Dosage: MOUTH ONE TIME A DAY
     Route: 048
     Dates: start: 202308
  2. RINVOQ [Suspect]
     Active Substance: UPADACITINIB
     Indication: Crohn^s disease
     Dosage: MOUTH ONE TIME A DAY
     Route: 048
     Dates: end: 202401
  3. RINVOQ [Suspect]
     Active Substance: UPADACITINIB
     Indication: Crohn^s disease
     Dosage: MOUTH ONE TIME A DAY, DISCONTINUED THERAPY PERMANENTLY
     Route: 048
     Dates: end: 202402

REACTIONS (3)
  - Intestinal perforation [Unknown]
  - Intestinal obstruction [Unknown]
  - Crohn^s disease [Recovered/Resolved]

NARRATIVE: CASE EVENT DATE: 20231101
